FAERS Safety Report 7480985-X (Version None)
Quarter: 2011Q2

REPORT INFORMATION
  Report Type: 
  Country: None (occurrence: None)
  Receive Date: 20110516
  Receipt Date: 20110502
  Transmission Date: 20111010
  Serious: Yes (Other)
  Sender: FDA-Public Use
  Company Number: US-CELGENEUS-163-21880-11050331

PATIENT
  Sex: Female
  Weight: 44 kg

DRUGS (1)
  1. REVLIMID [Suspect]
     Indication: MULTIPLE MYELOMA
     Dosage: 15 MILLIGRAM
     Route: 048
     Dates: start: 20101001

REACTIONS (4)
  - SPINAL FRACTURE [None]
  - CONTUSION [None]
  - OEDEMA PERIPHERAL [None]
  - BACK PAIN [None]
